FAERS Safety Report 8616060-8 (Version None)
Quarter: 2012Q3

REPORT INFORMATION
  Report Type: 
  Country: None (occurrence: None)
  Receive Date: 20120823
  Receipt Date: 20120809
  Transmission Date: 20120928
  Serious: Yes (Other)
  Sender: FDA-Public Use
  Company Number: BR-ROCHE-1102825

PATIENT
  Sex: Female

DRUGS (1)
  1. XOLAIR [Suspect]
     Indication: PRODUCT USED FOR UNKNOWN INDICATION

REACTIONS (11)
  - MALAISE [None]
  - MOUTH HAEMORRHAGE [None]
  - ABASIA [None]
  - WEIGHT DECREASED [None]
  - DYSPNOEA [None]
  - EPISTAXIS [None]
  - GENERAL PHYSICAL CONDITION ABNORMAL [None]
  - ASPHYXIA [None]
  - LIMB DISCOMFORT [None]
  - DISCOMFORT [None]
  - FATIGUE [None]
